FAERS Safety Report 5042710-1 (Version None)
Quarter: 2006Q2

REPORT INFORMATION
  Report Type: 
  Country: None (occurrence: None)
  Receive Date: 20060627
  Receipt Date: 20060613
  Transmission Date: 20061013
  Serious: Yes (Death, Life-Threatening, Hospitalization)
  Sender: FDA-Public Use
  Company Number: 2006P1000295

PATIENT
  Age: 76 Year
  Sex: Female
  Weight: 65 kg

DRUGS (11)
  1. RETEPLASE (RETEPLASE) [Suspect]
     Indication: ACUTE MYOCARDIAL INFARCTION
     Dosage: IV
     Route: 042
     Dates: start: 20051128, end: 20051128
  2. REOPRO [Suspect]
     Indication: ACUTE MYOCARDIAL INFARCTION
     Dosage: IV
     Route: 042
     Dates: start: 20051128
  3. HEPARIN [Concomitant]
  4. CIMETIDINE [Concomitant]
  5. INSULIN [Concomitant]
  6. PERINDOPRIL ERUMINE [Concomitant]
  7. NITROGLYCERIN [Concomitant]
  8. SIMVASTATIN [Concomitant]
  9. ACETYLSALICYLIC ACID SRT [Concomitant]
  10. AUGMENTIN /00756801/ [Concomitant]
  11. AMIKACIN [Concomitant]

REACTIONS (16)
  - AKINESIA [None]
  - AORTIC VALVE INCOMPETENCE [None]
  - CYANOSIS [None]
  - DILATATION ATRIAL [None]
  - MITRAL VALVE INCOMPETENCE [None]
  - MYOCARDIAL INFARCTION [None]
  - PERIPHERAL EMBOLISM [None]
  - PNEUMONIA [None]
  - PROTHROMBIN TIME PROLONGED [None]
  - PUNCTURE SITE REACTION [None]
  - RENAL FAILURE ACUTE [None]
  - TRICUSPID VALVE INCOMPETENCE [None]
  - VASCULAR CALCIFICATION [None]
  - VASCULAR PSEUDOANEURYSM [None]
  - VENTRICULAR DYSKINESIA [None]
  - VENTRICULAR HYPERTROPHY [None]
